FAERS Safety Report 18055840 (Version 1)
Quarter: 2020Q3

REPORT INFORMATION
  Report Type: Spontaneous
  Country: FR (occurrence: FR)
  Receive Date: 20200722
  Receipt Date: 20200722
  Transmission Date: 20201103
  Serious: Yes (Death)
  Sender: FDA-Public Use
  Company Number: FR-ANIPHARMA-2020-FR-000188

PATIENT
  Age: 71 Year
  Sex: Female
  Weight: 106 kg

DRUGS (11)
  1. LERCANIDIPINE HYDROCHLORIDE [Suspect]
     Active Substance: LERCANIDIPINE HYDROCHLORIDE
     Dosage: 20 MG DAILY
     Route: 048
     Dates: end: 20200701
  2. METFORMIN [Suspect]
     Active Substance: METFORMIN HYDROCHLORIDE
     Dosage: 3000 MG DAILY
     Route: 048
     Dates: end: 20200630
  3. CANDESARTAN CILEXETIL AND HYDROCHLOROTHIAZIDE [Suspect]
     Active Substance: CANDESARTAN CILEXETIL\HYDROCHLOROTHIAZIDE
     Indication: HYPERTENSION
     Dosage: 16/12.5 MG, ONE DOSAGE FORM DAILY
     Route: 048
     Dates: end: 20200630
  4. SPASFON (PHLOROGLUCINOL\TRIMETHYLPHLOROGLUCINOL) [Suspect]
     Active Substance: PHLOROGLUCINOL\1,3,5-TRIMETHOXYBENZENE
     Dosage: 6 DF DAILY
     Route: 048
     Dates: end: 20200630
  5. KARDEGIC [Suspect]
     Active Substance: ASPIRIN DL-LYSINE
     Dosage: 1 DF DAILY
     Route: 048
     Dates: end: 20200630
  6. OMEPRAZOLE. [Suspect]
     Active Substance: OMEPRAZOLE
     Dosage: 20 MG DAILY
     Route: 048
     Dates: end: 20200630
  7. HYPERIUM [Suspect]
     Active Substance: RILMENIDINE PHOSPHATE
     Dosage: 2 DF DAILY
     Route: 048
     Dates: end: 20200630
  8. GLICLAZIDE [Suspect]
     Active Substance: GLICLAZIDE
     Dosage: 120 MG DAILY
     Route: 048
     Dates: end: 20200630
  9. TERCIAN [Suspect]
     Active Substance: CYAMEMAZINE
     Dosage: 20 GTT DAILY
     Route: 048
     Dates: end: 20200630
  10. SERESTA [Suspect]
     Active Substance: OXAZEPAM
     Dosage: 1 DF DAILY
     Route: 048
     Dates: end: 20200630
  11. DOLIPRANE [Suspect]
     Active Substance: ACETAMINOPHEN
     Route: 048
     Dates: end: 20200630

REACTIONS (3)
  - Lactic acidosis [Fatal]
  - Multiple organ dysfunction syndrome [Fatal]
  - Septic shock [Fatal]

NARRATIVE: CASE EVENT DATE: 20200630
